FAERS Safety Report 7397497 (Version 2)
Quarter: 2013Q2

REPORT INFORMATION
  Report Type: Report from Study
  Country: GB (occurrence: GB)
  Receive Date: 20100524
  Receipt Date: 20130517
  Transmission Date: 20140414
  Serious: Yes (Hospitalization)
  Sender: FDA-Public Use
  Company Number: GB-CELGENEUS-167-50794-10051059

PATIENT
  Age: 69 Year
  Sex: Male

DRUGS (5)
  1. VIDAZA [Suspect]
     Indication: ACUTE MYELOID LEUKAEMIA
     Dosage: 130 MILLIGRAM
     Route: 058
     Dates: start: 20070402, end: 20091024
  2. SODIUM VALPROATE [Suspect]
     Indication: ACUTE MYELOID LEUKAEMIA
     Dosage: 600 MILLIGRAM
     Route: 048
     Dates: start: 20070402, end: 20070405
  3. SODIUM VALPROATE [Suspect]
     Dosage: 700 MILLIGRAM
     Route: 048
     Dates: start: 20070406, end: 20081103
  4. ATRA [Suspect]
     Indication: ACUTE MYELOID LEUKAEMIA
     Dosage: 45 MILLIGRAM/SQ. METER
     Route: 048
     Dates: start: 20070402, end: 20081103
  5. THEOPHYLLINE [Suspect]
     Indication: ACUTE MYELOID LEUKAEMIA
     Dosage: 175 MILLIGRAM
     Route: 048
     Dates: start: 20070402, end: 20081103

REACTIONS (1)
  - Epistaxis [Recovered/Resolved]
